FAERS Safety Report 9413742 (Version 1)
Quarter: 2013Q3

REPORT INFORMATION
  Report Type: Spontaneous
  Country: BR (occurrence: BR)
  Receive Date: 20130722
  Receipt Date: 20130722
  Transmission Date: 20140515
  Serious: Yes (Other)
  Sender: FDA-Public Use
  Company Number: BR-ASTRAZENECA-2013SE52137

PATIENT
  Sex: Female

DRUGS (1)
  1. EMLA [Suspect]
     Indication: LOCAL ANAESTHESIA
     Route: 061
     Dates: start: 201303, end: 201304

REACTIONS (6)
  - Corneal defect [Unknown]
  - Accidental exposure to product [Recovered/Resolved]
  - Lacrimation increased [Unknown]
  - Eyelid disorder [Unknown]
  - Eye irritation [Unknown]
  - Off label use [Recovered/Resolved]
